FAERS Safety Report 7030890-8 (Version None)
Quarter: 2010Q4

REPORT INFORMATION
  Report Type: 
  Country: None (occurrence: None)
  Receive Date: 20101006
  Receipt Date: 20100928
  Transmission Date: 20110411
  Serious: Yes (Hospitalization)
  Sender: FDA-Public Use
  Company Number: US-VALEANT-2010VX001658

PATIENT
  Age: 74 Year
  Sex: Male
  Weight: 72 kg

DRUGS (2)
  1. MESTINON TABLET (NOT TIMESPAN) [Suspect]
     Indication: MYASTHENIA GRAVIS
     Route: 048
     Dates: start: 20100601, end: 20100914
  2. CELLCEPT [Concomitant]
     Route: 065
     Dates: start: 20100801

REACTIONS (1)
  - PYREXIA [None]
